FAERS Safety Report 8550684-1 (Version None)
Quarter: 2012Q3

REPORT INFORMATION
  Report Type: 
  Country: None (occurrence: None)
  Receive Date: 20120730
  Receipt Date: 20120720
  Transmission Date: 20120928
  Serious: Yes (Other)
  Sender: FDA-Public Use
  Company Number: US-VIIV HEALTHCARE LIMITED-A0974823A

PATIENT
  Sex: Male
  Weight: 2 kg

DRUGS (5)
  1. RETROVIR [Suspect]
     Indication: ANTIRETROVIRAL THERAPY
     Dosage: 2MGKH PER DAY
     Route: 064
     Dates: start: 20111007, end: 20111007
  2. VIRAMUNE [Suspect]
     Indication: ANTIRETROVIRAL THERAPY
     Dosage: 400MGD PER DAY
     Route: 064
  3. COMBIVIR [Suspect]
     Indication: ANTIRETROVIRAL THERAPY
     Dosage: 2TAB PER DAY
     Route: 064
     Dates: start: 20110715
  4. EPIVIR [Suspect]
     Indication: ANTIRETROVIRAL THERAPY
     Dosage: 300MGD PER DAY
     Route: 064
     Dates: end: 20110715
  5. ZERIT [Suspect]
     Indication: ANTIRETROVIRAL THERAPY
     Dosage: 40MGD PER DAY
     Route: 064
     Dates: end: 20110715

REACTIONS (4)
  - LIMB MALFORMATION [None]
  - PREMATURE BABY [None]
  - FOETAL EXPOSURE DURING PREGNANCY [None]
  - TRISOMY 21 [None]
